FAERS Safety Report 12878190 (Version 1)
Quarter: 2016Q4

REPORT INFORMATION
  Report Type: Spontaneous
  Country: JP (occurrence: CZ)
  Receive Date: 20161024
  Receipt Date: 20161024
  Transmission Date: 20170207
  Serious: Yes (Other)
  Sender: FDA-Public Use
  Company Number: CZ-BAUSCH-BL-2016-026073

PATIENT
  Sex: Female

DRUGS (6)
  1. FLUOROURACIL. [Suspect]
     Active Substance: FLUOROURACIL
     Indication: BREAST CANCER
  2. FLUOROURACIL. [Suspect]
     Active Substance: FLUOROURACIL
     Indication: METASTASES TO LUNG
     Dosage: EVERY CYCLE
     Route: 065
     Dates: start: 20090403, end: 20091017
  3. CYCLOPHOSPHAMIDE. [Suspect]
     Active Substance: CYCLOPHOSPHAMIDE
     Indication: BREAST CANCER
     Dosage: EVERY CYCLE, FEW WEEK
     Route: 065
     Dates: start: 2009, end: 20091017
  4. EPIRUBICIN [Suspect]
     Active Substance: EPIRUBICIN
     Dosage: EVERY CYCLE, FEW WEEK
     Route: 065
     Dates: start: 20090403
  5. CYCLOPHOSPHAMIDE. [Suspect]
     Active Substance: CYCLOPHOSPHAMIDE
     Indication: METASTASES TO LUNG
     Dosage: EVERY CYCLE, FEW WEEK
     Route: 065
     Dates: start: 20090403
  6. EPIRUBICIN [Suspect]
     Active Substance: EPIRUBICIN
     Dosage: EVERY CYCLE, FEW WEEK
     Route: 065
     Dates: start: 2009, end: 20091217

REACTIONS (2)
  - Breast cancer metastatic [Recovering/Resolving]
  - Haematotoxicity [Unknown]

NARRATIVE: CASE EVENT DATE: 2009
